FAERS Safety Report 11687007 (Version 1)
Quarter: 2015Q4

REPORT INFORMATION
  Report Type: Report from Study
  Country: US (occurrence: US)
  Receive Date: 20151030
  Receipt Date: 20151030
  Transmission Date: 20160304
  Serious: Yes (Other)
  Sender: FDA-Public Use
  Company Number: US-JNJFOC-20151017880

PATIENT
  Sex: Female
  Weight: 80.74 kg

DRUGS (7)
  1. INVOKANA [Suspect]
     Active Substance: CANAGLIFLOZIN
     Indication: DIABETES MELLITUS
     Route: 048
     Dates: start: 201503
  2. METFORMIN [Concomitant]
     Active Substance: METFORMIN HYDROCHLORIDE
     Indication: DIABETES MELLITUS
     Route: 065
     Dates: start: 2001
  3. GLIMEPIRIDE. [Concomitant]
     Active Substance: GLIMEPIRIDE
     Indication: DIABETES MELLITUS
     Route: 065
     Dates: start: 2015
  4. LISINOPRIL HCTZ [Concomitant]
     Active Substance: HYDROCHLOROTHIAZIDE\LISINOPRIL
     Indication: BLOOD PRESSURE ABNORMAL
     Dosage: 20-12.5 MG
     Route: 065
     Dates: start: 2001
  5. ATORVASTATIN [Concomitant]
     Active Substance: ATORVASTATIN
     Indication: BLOOD CHOLESTEROL ABNORMAL
     Route: 065
     Dates: start: 2001
  6. INVOKANA [Suspect]
     Active Substance: CANAGLIFLOZIN
     Indication: DIABETES MELLITUS
     Route: 048
     Dates: end: 2015
  7. SERTRALINE HCL [Concomitant]
     Active Substance: SERTRALINE HYDROCHLORIDE
     Indication: DEPRESSION
     Route: 065
     Dates: start: 2001

REACTIONS (5)
  - Nerve injury [Not Recovered/Not Resolved]
  - Pain in extremity [Not Recovered/Not Resolved]
  - Hypoaesthesia [Not Recovered/Not Resolved]
  - Rotator cuff syndrome [Recovered/Resolved]
  - Glycosylated haemoglobin increased [Recovered/Resolved]

NARRATIVE: CASE EVENT DATE: 2015
